FAERS Safety Report 16143600 (Version 1)
Quarter: 2019Q2

REPORT INFORMATION
  Report Type: Spontaneous
  Country: US (occurrence: US)
  Receive Date: 20190401
  Receipt Date: 20190401
  Transmission Date: 20190711
  Serious: No
  Sender: FDA-Public Use
  Company Number: US-BAUSCH-BL-2019-009143

PATIENT
  Age: 63 Year
  Sex: Male

DRUGS (1)
  1. SILIQ [Suspect]
     Active Substance: BRODALUMAB
     Indication: PSORIASIS
     Route: 065
     Dates: end: 201902

REACTIONS (4)
  - Anger [Recovering/Resolving]
  - Aggression [Recovering/Resolving]
  - Headache [Recovering/Resolving]
  - Hostility [Recovering/Resolving]
